FAERS Safety Report 14913910 (Version 2)
Quarter: 2018Q3

REPORT INFORMATION
  Report Type: Spontaneous
  Country: US (occurrence: US)
  Receive Date: 20180518
  Receipt Date: 20180702
  Transmission Date: 20181010
  Serious: No
  Sender: FDA-Public Use
  Company Number: US-SUNOVION-2018SUN001916

PATIENT
  Sex: Female
  Weight: 146.12 kg

DRUGS (1)
  1. UTIBRON NEOHALER [Suspect]
     Active Substance: GLYCOPYRROLATE\INDACATEROL MALEATE
     Indication: PRODUCT USED FOR UNKNOWN INDICATION
     Dosage: 27.5/15.6
     Route: 055
     Dates: start: 20180607

REACTIONS (1)
  - Dysgeusia [Recovered/Resolved]
